FAERS Safety Report 17605742 (Version 1)
Quarter: 2020Q1

REPORT INFORMATION
  Report Type: Spontaneous
  Country: AU (occurrence: AU)
  Receive Date: 20200331
  Receipt Date: 20200331
  Transmission Date: 20200409
  Serious: Yes (Hospitalization)
  Sender: FDA-Public Use
  Company Number: AU-ROCHE-2571848

PATIENT
  Sex: Female

DRUGS (3)
  1. ARBIDOL [Concomitant]
     Active Substance: UMIFENOVIR
     Indication: CORONA VIRUS INFECTION
  2. KALETRA [Concomitant]
     Active Substance: LOPINAVIR\RITONAVIR
     Indication: CORONA VIRUS INFECTION
  3. TAMIFLU [Suspect]
     Active Substance: OSELTAMIVIR PHOSPHATE
     Indication: CORONA VIRUS INFECTION
     Route: 065

REACTIONS (12)
  - Pyrexia [Recovered/Resolved]
  - Intentional product use issue [Unknown]
  - Asthenia [Unknown]
  - Chills [Unknown]
  - Heart rate decreased [Unknown]
  - Anosmia [Unknown]
  - Decreased appetite [Recovered/Resolved]
  - Diarrhoea [Unknown]
  - Hallucination [Unknown]
  - Ageusia [Unknown]
  - Vomiting [Unknown]
  - Off label use [Unknown]
